FAERS Safety Report 5092405-3 (Version None)
Quarter: 2006Q3

REPORT INFORMATION
  Report Type: 
  Country: None (occurrence: None)
  Receive Date: 20060825
  Receipt Date: 20060816
  Transmission Date: 20061208
  Serious: Yes (Disabling, Other)
  Sender: FDA-Public Use
  Company Number: 2006-00437

PATIENT
  Age: 82 Year
  Sex: Female

DRUGS (2)
  1. VELCADE [Suspect]
     Indication: MULTIPLE MYELOMA
     Dosage: 2.10 MG, IV BOLUS
     Route: 040
     Dates: start: 20060117, end: 20060127
  2. DECADRON [Concomitant]

REACTIONS (1)
  - BLINDNESS [None]
